FAERS Safety Report 8996778 (Version 1)
Quarter: 2013Q1

REPORT INFORMATION
  Report Type: Spontaneous
  Country: US (occurrence: US)
  Receive Date: 20130104
  Receipt Date: 20130104
  Transmission Date: 20140127
  Serious: Yes (Hospitalization)
  Sender: FDA-Public Use
  Company Number: US-009507513-1301USA000591

PATIENT
  Age: 50 Year
  Sex: Female

DRUGS (7)
  1. ASENAPINE MALEATE-BIPOLAR DISORDER [Suspect]
     Indication: BIPOLAR DISORDER
     Dosage: 10 MG, QD
     Route: 048
  2. ASENAPINE MALEATE-BIPOLAR DISORDER [Suspect]
     Dosage: 5 MG, QD
     Route: 048
  3. ALBUTEROL [Concomitant]
     Indication: CHRONIC OBSTRUCTIVE PULMONARY DISEASE
     Dosage: UNK, PRN
     Route: 055
  4. FLUTICASONE [Concomitant]
     Indication: CHRONIC OBSTRUCTIVE PULMONARY DISEASE
     Dosage: UNK, BID
     Route: 055
  5. SALMETEROL [Concomitant]
     Indication: CHRONIC OBSTRUCTIVE PULMONARY DISEASE
     Dosage: UNK, BID
     Route: 055
  6. TIOTROPIUM BROMIDE [Concomitant]
     Indication: CHRONIC OBSTRUCTIVE PULMONARY DISEASE
     Dosage: UNK, QD
  7. BISACODYL [Concomitant]
     Indication: CONSTIPATION

REACTIONS (5)
  - Alcohol poisoning [Unknown]
  - Suicidal ideation [Recovered/Resolved]
  - Tinnitus [Recovered/Resolved]
  - Depression [Unknown]
  - Inappropriate schedule of drug administration [Unknown]
